FAERS Safety Report 16149362 (Version 1)
Quarter: 2019Q2

REPORT INFORMATION
  Report Type: Spontaneous
  Country: US (occurrence: US)
  Receive Date: 20190402
  Receipt Date: 20190402
  Transmission Date: 20190711
  Serious: No
  Sender: FDA-Public Use
  Company Number: US-TEVA-2019-US-1026649

PATIENT
  Age: 68 Year
  Sex: Female

DRUGS (1)
  1. BUPRENORPHINE TRANSDERMAL SYSTEM [Suspect]
     Active Substance: BUPRENORPHINE
     Indication: PAIN
     Dosage: DOSE STRENGTH:  5 MCG/HR
     Route: 062
     Dates: start: 20190203

REACTIONS (3)
  - Application site rash [Unknown]
  - Product adhesion issue [Unknown]
  - Application site vesicles [Unknown]
